FAERS Safety Report 24305593 (Version 3)
Quarter: 2024Q4

REPORT INFORMATION
  Report Type: Report from Study
  Country: CL (occurrence: CL)
  Receive Date: 20240911
  Receipt Date: 20241219
  Transmission Date: 20250114
  Serious: Yes (Other)
  Sender: UCB
  Company Number: CL-UCBSA-2024046058

PATIENT
  Sex: Female

DRUGS (11)
  1. VIMPAT [Suspect]
     Active Substance: LACOSAMIDE
     Indication: Epilepsy
     Dosage: 100 MG 1 TAB IN MRG AND 1 TAB IN NYT
     Route: 048
     Dates: start: 20240802, end: 20240808
  2. VIMPAT [Suspect]
     Active Substance: LACOSAMIDE
     Dosage: 1 ? TABLET IN THE MORNING AND 1 ? AT NIGHT
     Route: 048
     Dates: start: 20240809, end: 20240905
  3. VIMPAT [Suspect]
     Active Substance: LACOSAMIDE
     Dosage: LOWERED IT TO HALF IN THE MORNING AND HALF AT NIGHT AND THUS COMPLETE A DOSE OF 100 MG.
     Route: 048
     Dates: start: 20240906
  4. VIMPAT [Suspect]
     Active Substance: LACOSAMIDE
     Dosage: 100 MILLIGRAM, ONCE DAILY (QD)
     Route: 048
     Dates: start: 20240810, end: 202411
  5. CLOBAZAM [Concomitant]
     Active Substance: CLOBAZAM
     Indication: Product used for unknown indication
     Dosage: 10 MG 1 AT NIGHT
     Route: 048
  6. LEVOTHYROXINE SODIUM [Concomitant]
     Active Substance: LEVOTHYROXINE SODIUM
     Indication: Product used for unknown indication
     Dosage: UNK
     Route: 048
  7. SERTRALINE HYDROCHLORIDE [Concomitant]
     Active Substance: SERTRALINE HYDROCHLORIDE
     Indication: Product used for unknown indication
     Dosage: UNK
     Route: 048
  8. CARBAMAZEPINE [Concomitant]
     Active Substance: CARBAMAZEPINE
     Indication: Product used for unknown indication
     Dosage: UNK
     Route: 048
     Dates: start: 202405
  9. LEVETIRACETAM [Concomitant]
     Active Substance: LEVETIRACETAM
     Indication: Product used for unknown indication
     Dosage: UNK
     Route: 048
  10. CARBAMAZEPINE [Concomitant]
     Active Substance: CARBAMAZEPINE
     Indication: Product used for unknown indication
     Dosage: 200 MG 2 ? EVERY 12 HOURS
     Route: 048
  11. LEVETIRACETAM [Concomitant]
     Active Substance: LEVETIRACETAM
     Indication: Product used for unknown indication
     Dosage: 1000 MG 1 ? EVERY 12 HOURS
     Route: 048
     Dates: start: 202405

REACTIONS (13)
  - Seizure [Not Recovered/Not Resolved]
  - Partial seizures [Unknown]
  - Echoencephalogram abnormal [Unknown]
  - Epilepsy [Unknown]
  - Nausea [Recovering/Resolving]
  - Somnolence [Not Recovered/Not Resolved]
  - Epileptic aura [Unknown]
  - Dizziness [Recovering/Resolving]
  - Illness [Unknown]
  - Wrong technique in product usage process [Unknown]
  - Product availability issue [Unknown]
  - Product administration interrupted [Unknown]
  - Drug ineffective [Unknown]

NARRATIVE: CASE EVENT DATE: 20240101
